FAERS Safety Report 20950667 (Version 1)
Quarter: 2022Q2

REPORT INFORMATION
  Report Type: Spontaneous
  Country: US (occurrence: None)
  Receive Date: 20220613
  Receipt Date: 20220613
  Transmission Date: 20220720
  Serious: Yes (Hospitalization)
  Sender: FDA-Public Use
  Company Number: None

PATIENT
  Sex: Male

DRUGS (7)
  1. ABIRATERONE ACETATE [Suspect]
     Active Substance: ABIRATERONE ACETATE
     Indication: Neoplasm malignant
     Dosage: TAKE 2 TABLETS (1,000 MG TOTAL) BY MOUTH EVERY MORNING (BEFORE BREAKFAST).?
     Route: 048
     Dates: start: 20210331
  2. GABAPENTIN TAB [Concomitant]
  3. MORPHINE SUL TAB ER [Concomitant]
  4. OXYCODONE TAB [Concomitant]
  5. OXYCONTIN TAB CR [Concomitant]
  6. PREDNISONE [Concomitant]
     Active Substance: PREDNISONE
  7. ZOFRAN TAB [Concomitant]

REACTIONS (2)
  - Surgery [None]
  - Therapy interrupted [None]
